FAERS Safety Report 16924625 (Version 1)
Quarter: 2019Q4

REPORT INFORMATION
  Report Type: Spontaneous
  Country: BR (occurrence: BR)
  Receive Date: 20191016
  Receipt Date: 20191016
  Transmission Date: 20200122
  Serious: Yes (Death)
  Sender: FDA-Public Use
  Company Number: BR-PFIZER INC-2019445889

PATIENT
  Sex: Male

DRUGS (1)
  1. LYRICA [Suspect]
     Active Substance: PREGABALIN
     Indication: MEMORY IMPAIRMENT
     Dosage: UNK

REACTIONS (4)
  - Organ failure [Fatal]
  - Venous occlusion [Fatal]
  - Product use in unapproved indication [Unknown]
  - Off label use [Unknown]
